FAERS Safety Report 7000094-3 (Version None)
Quarter: 2010Q3

REPORT INFORMATION
  Report Type: 
  Country: None (occurrence: None)
  Receive Date: 20100920
  Receipt Date: 20100713
  Transmission Date: 20110219
  Serious: Yes (Hospitalization)
  Sender: FDA-Public Use
  Company Number: US-ASTRAZENECA-2009UW17584

PATIENT
  Age: 53 Year
  Sex: Female
  Weight: 95.3 kg

DRUGS (25)
  1. SEROQUEL [Suspect]
     Indication: SLEEP DISORDER
     Dosage: 100 MG, 200 MG AND 800 MG
     Route: 048
     Dates: start: 20040201, end: 20080520
  2. SEROQUEL [Suspect]
     Indication: PSYCHOTIC DISORDER
     Dosage: 100 MG, 200 MG AND 800 MG
     Route: 048
     Dates: start: 20040201, end: 20080520
  3. SEROQUEL [Suspect]
     Indication: DEPRESSION
     Dosage: 100 MG, 200 MG AND 800 MG
     Route: 048
     Dates: start: 20040201, end: 20080520
  4. SEROQUEL [Suspect]
     Indication: POST-TRAUMATIC STRESS DISORDER
     Dosage: 100 MG, 200 MG AND 800 MG
     Route: 048
     Dates: start: 20040201, end: 20080520
  5. SEROQUEL [Suspect]
     Route: 048
     Dates: start: 20080412, end: 20080721
  6. SEROQUEL [Suspect]
     Route: 048
     Dates: start: 20080412, end: 20080721
  7. SEROQUEL [Suspect]
     Route: 048
     Dates: start: 20080412, end: 20080721
  8. SEROQUEL [Suspect]
     Route: 048
     Dates: start: 20080412, end: 20080721
  9. RISPERDAL [Concomitant]
     Route: 048
     Dates: start: 20040101
  10. RISPERDAL [Concomitant]
     Route: 048
  11. ADVAIR DISKUS 100/50 [Concomitant]
     Dosage: 500/50 ONE PUFF EVERY 12 HOURS
  12. CYMBALTA [Concomitant]
     Dosage: 30-60 MG
     Route: 048
     Dates: start: 20080101
  13. GLUCOVANCE [Concomitant]
     Dosage: 5/500 TAB 1 BY MOUTH EVERY AM AND AT BEDTIME
  14. LORTAB [Concomitant]
     Indication: PAIN
     Dosage: 7.5/500 TAB 1 BY MOUTH AS NEEDED EVERY 4 HOURS
     Route: 048
  15. PROTONIX [Concomitant]
     Route: 048
  16. PROTONIX [Concomitant]
     Route: 048
  17. PROZAC [Concomitant]
     Route: 048
  18. XANAX [Concomitant]
     Route: 048
  19. MORPHINE [Concomitant]
     Indication: PAIN
     Dosage: 2 MG IV 0.5 MIN PRN
  20. MORPHINE [Concomitant]
     Dates: start: 20080116
  21. PREDNISONE [Concomitant]
     Route: 048
     Dates: start: 20070305
  22. TEMAZEPAM [Concomitant]
     Indication: INSOMNIA
     Dosage: 15 MG, AT BEDTIME, PRN
     Dates: start: 20070305
  23. ZOFRAN [Concomitant]
     Indication: PAIN
     Dates: start: 20080122
  24. NUBAIN [Concomitant]
     Indication: HEADACHE
     Dates: start: 20080122
  25. PHENERGAN [Concomitant]
     Indication: HEADACHE
     Dates: start: 20080122

REACTIONS (3)
  - BLOOD GLUCOSE INCREASED [None]
  - OBESITY [None]
  - TYPE 2 DIABETES MELLITUS [None]
